FAERS Safety Report 12616874 (Version 1)
Quarter: 2016Q3

REPORT INFORMATION
  Report Type: Report from Study
  Country: US (occurrence: US)
  Receive Date: 20160802
  Receipt Date: 20160802
  Transmission Date: 20161109
  Serious: Yes (Other)
  Sender: FDA-Public Use
  Company Number: US-AMGEN-USASL2016098511

PATIENT
  Age: 66 Year
  Sex: Male

DRUGS (2)
  1. ENBREL [Suspect]
     Active Substance: ETANERCEPT
     Indication: RHEUMATOID ARTHRITIS
     Dosage: 50 MG, QWK
     Route: 065
     Dates: start: 2005
  2. METHOTREXATE. [Concomitant]
     Active Substance: METHOTREXATE
     Dosage: UNK
     Route: 065
     Dates: start: 1995

REACTIONS (9)
  - Musculoskeletal pain [Unknown]
  - Neuralgia [Not Recovered/Not Resolved]
  - Impaired work ability [Unknown]
  - Toothache [Unknown]
  - Mobility decreased [Unknown]
  - Exostosis [Unknown]
  - Pain in extremity [Unknown]
  - Neck pain [Unknown]
  - Spinal decompression [Unknown]

NARRATIVE: CASE EVENT DATE: 201310
